FAERS Safety Report 9875608 (Version 1)
Quarter: 2014Q1

REPORT INFORMATION
  Report Type: Spontaneous
  Country: US (occurrence: None)
  Receive Date: 20140205
  Receipt Date: 20140205
  Transmission Date: 20141002
  Serious: Yes (Hospitalization, Other)
  Sender: FDA-Public Use
  Company Number: None

PATIENT
  Age: 64 Year
  Sex: Female
  Weight: 45 kg

DRUGS (2)
  1. XELODA [Suspect]
     Indication: COLON CANCER
     Route: 048
     Dates: start: 20131230, end: 20140115
  2. ACETAMINOPHEN [Concomitant]

REACTIONS (4)
  - Nausea [None]
  - Abdominal pain [None]
  - Frequent bowel movements [None]
  - Inflammation [None]
